FAERS Safety Report 21997680 (Version 2)
Quarter: 2024Q3

REPORT INFORMATION
  Report Type: Spontaneous
  Country: BR (occurrence: BR)
  Receive Date: 20230216
  Receipt Date: 20240903
  Transmission Date: 20241017
  Serious: Yes (Disabling)
  Sender: CELLTRION
  Company Number: BR-CELLTRION INC.-2023BR003159

PATIENT

DRUGS (3)
  1. INFLIXIMAB [Suspect]
     Active Substance: INFLIXIMAB
     Indication: Crohn^s disease
     Dosage: 4 AMPOULES - EVERY 8 WEEKS
     Route: 042
     Dates: start: 20230110
  2. INFLIXIMAB [Suspect]
     Active Substance: INFLIXIMAB
     Dosage: 6 AMPOULES OF 100 MG EACH (600 MG TOTAL) EVERY 60 DAYS.
     Route: 042
     Dates: start: 20240819
  3. PREDNISOLONE [Concomitant]
     Active Substance: PREDNISOLONE
     Indication: Crohn^s disease
     Dosage: 40 MILLIGRAM, PER DAY. (START DATE: 1 YEAR)
     Route: 048

REACTIONS (8)
  - Bedridden [Unknown]
  - Malaise [Unknown]
  - Pain [Unknown]
  - Therapy interrupted [Unknown]
  - Insurance issue [Unknown]
  - Therapeutic response shortened [Unknown]
  - Intentional product use issue [Unknown]
  - Intentional product use issue [Unknown]
